FAERS Safety Report 25354034 (Version 2)
Quarter: 2025Q4

REPORT INFORMATION
  Report Type: Spontaneous
  Country: US (occurrence: US)
  Receive Date: 20250523
  Receipt Date: 20251215
  Transmission Date: 20260118
  Serious: No
  Sender: SANOFI AVENTIS
  Company Number: US-SA-2025SA146262

PATIENT
  Age: 83 Year
  Sex: Female

DRUGS (8)
  1. DUPIXENT [Suspect]
     Active Substance: DUPILUMAB
     Indication: Osteopetrosis
     Dosage: 300 MG, QOW
     Route: 058
     Dates: start: 20251028
  2. FUROSEMIDE [Concomitant]
     Active Substance: FUROSEMIDE
  3. LOVASTATIN [Concomitant]
     Active Substance: LOVASTATIN
  4. PRAMIPEXOLE [Concomitant]
     Active Substance: PRAMIPEXOLE
  5. RESTASIS [Concomitant]
     Active Substance: CYCLOSPORINE
  6. COENZYME Q10 [Concomitant]
     Active Substance: DIETARY SUPPLEMENT\UBIDECARENONE
  7. MAGNESIUM [Concomitant]
     Active Substance: MAGNESIUM
  8. GINGER ROOT [ZINGIBER OFFICINALE ROOT] [Concomitant]

REACTIONS (4)
  - Fatigue [Unknown]
  - Dry eye [Not Recovered/Not Resolved]
  - Intentional dose omission [Unknown]
  - Product use in unapproved indication [Unknown]

NARRATIVE: CASE EVENT DATE: 20250101
